FAERS Safety Report 14807666 (Version 1)
Quarter: 2018Q2

REPORT INFORMATION
  Report Type: Spontaneous
  Country: FR (occurrence: FR)
  Receive Date: 20180425
  Receipt Date: 20180425
  Transmission Date: 20180711
  Serious: Yes (Other)
  Sender: FDA-Public Use
  Company Number: FR-MYLANLABS-2018M1024690

PATIENT
  Age: 81 Year
  Sex: Female

DRUGS (2)
  1. ALPRAZOLAM MYLAN 0,25 MG [Suspect]
     Active Substance: ALPRAZOLAM
     Dosage: UNK
  2. ALPRAZOLAM MYLAN 0,25 MG [Suspect]
     Active Substance: ALPRAZOLAM
     Indication: PRODUCT USED FOR UNKNOWN INDICATION
     Dosage: UNK
     Dates: start: 1994

REACTIONS (8)
  - Blood pressure increased [Unknown]
  - Somnolence [Unknown]
  - Malaise [Unknown]
  - Tremor [Unknown]
  - Drug effect increased [Unknown]
  - Drug dependence [Unknown]
  - Alopecia [Unknown]
  - Headache [Unknown]
